FAERS Safety Report 18836947 (Version 1)
Quarter: 2021Q1

REPORT INFORMATION
  Report Type: Spontaneous
  Country: US (occurrence: US)
  Receive Date: 20210203
  Receipt Date: 20210203
  Transmission Date: 20210419
  Serious: No
  Sender: FDA-Public Use
  Company Number: US-ALLERGAN-2041335US

PATIENT
  Age: 8 Month

DRUGS (2)
  1. BOTOX [Suspect]
     Active Substance: ONABOTULINUMTOXINA
     Dosage: UNK, SINGLE
     Route: 063
     Dates: start: 20171020, end: 20171020
  2. BOTOX [Suspect]
     Active Substance: ONABOTULINUMTOXINA
     Indication: MATERNAL EXPOSURE DURING BREAST FEEDING
     Dosage: UNK, SINGLE
     Route: 063
     Dates: start: 201801, end: 201801

REACTIONS (1)
  - Maternal exposure during breast feeding [Unknown]
